FAERS Safety Report 25151434 (Version 1)
Quarter: 2025Q2

REPORT INFORMATION
  Report Type: Spontaneous
  Country: DE (occurrence: DE)
  Receive Date: 20250402
  Receipt Date: 20250402
  Transmission Date: 20250717
  Serious: Yes (Other)
  Sender: DR REDDYS
  Company Number: None

PATIENT
  Age: 47 Year
  Sex: Male

DRUGS (5)
  1. RAMIPRIL [Suspect]
     Active Substance: RAMIPRIL
     Indication: Product used for unknown indication
  2. AMLODIPINE [Suspect]
     Active Substance: AMLODIPINE BESYLATE
     Indication: Product used for unknown indication
  3. FILGRASTIM [Suspect]
     Active Substance: FILGRASTIM
     Indication: Stem cell donor
     Route: 058
     Dates: start: 20121108, end: 20121113
  4. FILGRASTIM [Suspect]
     Active Substance: FILGRASTIM
     Dates: start: 20121108, end: 20121113
  5. ALLOPURINOL [Concomitant]
     Active Substance: ALLOPURINOL
     Indication: Product used for unknown indication
     Route: 048
     Dates: start: 2000

REACTIONS (11)
  - Arrhythmia [Unknown]
  - Erysipelas [Recovered/Resolved]
  - Erysipelas [Recovered/Resolved]
  - Erysipelas [Recovered/Resolved]
  - Cardiac failure [Not Recovered/Not Resolved]
  - Cardiac failure [Not Recovered/Not Resolved]
  - Injection site pain [Recovered/Resolved]
  - Hypertension [Not Recovered/Not Resolved]
  - Varicose vein [Not Recovered/Not Resolved]
  - Bone pain [Recovered/Resolved]
  - Nasopharyngitis [Recovered/Resolved]

NARRATIVE: CASE EVENT DATE: 20121108
